FAERS Safety Report 4492807-X (Version None)
Quarter: 2004Q4

REPORT INFORMATION
  Report Type: 
  Country: None (occurrence: None)
  Receive Date: 20041029
  Receipt Date: 20041014
  Transmission Date: 20050328
  Serious: Yes (Other)
  Sender: FDA-Public Use
  Company Number: GB-JNJFOC-20041004022

PATIENT
  Age: 2 Year
  Sex: Male

DRUGS (3)
  1. MEBENDAZOLE [Suspect]
     Indication: ENTEROBIASIS
     Dosage: 5 ML, IN 1 DAY, ORAL
     Route: 048
     Dates: start: 20040826, end: 20040826
  2. MMR VACCINE (MEASLES, MUMPS AND RUBELLA VACCINE) [Suspect]
     Indication: IMMUNISATION
     Dosage: 0.5 ML, IN 1 DAY, INTRAMUSCULAR
     Route: 030
     Dates: start: 20040826, end: 20040826
  3. ACETAMINOPHEN [Concomitant]

REACTIONS (2)
  - DRUG INTERACTION [None]
  - GRAND MAL CONVULSION [None]
